FAERS Safety Report 15763968 (Version 2)
Quarter: 2019Q4

REPORT INFORMATION
  Report Type: Report from Study
  Country: DE (occurrence: DE)
  Receive Date: 20181227
  Receipt Date: 20191021
  Transmission Date: 20200122
  Serious: Yes (Death, Hospitalization, Other)
  Sender: FDA-Public Use
  Company Number: DE-BRISTOL-MYERS SQUIBB COMPANY-BMS-2018-120980

PATIENT
  Age: 80 Year
  Sex: Male
  Weight: 110 kg

DRUGS (1)
  1. APIXABAN [Suspect]
     Active Substance: APIXABAN
     Indication: PRODUCT USED FOR UNKNOWN INDICATION
     Dosage: UNK
     Route: 065
     Dates: end: 20170815

REACTIONS (3)
  - Sepsis [Fatal]
  - Pneumonia [Fatal]
  - Haematemesis [Fatal]

NARRATIVE: CASE EVENT DATE: 20180818
